FAERS Safety Report 14246379 (Version 2)
Quarter: 2017Q4

REPORT INFORMATION
  Report Type: Spontaneous
  Country: GB (occurrence: GB)
  Receive Date: 20171204
  Receipt Date: 20171215
  Transmission Date: 20180321
  Serious: Yes (Hospitalization, Disabling, Other)
  Sender: FDA-Public Use
  Company Number: GB-009507513-1711GBR010716

PATIENT
  Age: 40 Year
  Sex: Female
  Weight: 59.87 kg

DRUGS (1)
  1. NEXPLANON [Suspect]
     Active Substance: ETONOGESTREL
     Indication: CONTRACEPTION
     Dosage: UNK
     Route: 051
     Dates: start: 201606, end: 20170823

REACTIONS (7)
  - Liver function test increased [Unknown]
  - Blood urine present [Recovered/Resolved]
  - Anxiety [Recovered/Resolved]
  - Reaction to excipient [Unknown]
  - Dizziness [Recovered/Resolved]
  - Palpitations [Recovered/Resolved]
  - Adjustment disorder with mixed anxiety and depressed mood [Recovered/Resolved]

NARRATIVE: CASE EVENT DATE: 201703
